FAERS Safety Report 6454635-5 (Version None)
Quarter: 2009Q4

REPORT INFORMATION
  Report Type: 
  Country: None (occurrence: None)
  Receive Date: 20091124
  Receipt Date: 20091120
  Transmission Date: 20100525
  Serious: Yes (Other)
  Sender: FDA-Public Use
  Company Number: US-GILEAD-2009-0025358

PATIENT
  Age: 38 Year
  Sex: Female

DRUGS (6)
  1. VIREAD [Suspect]
     Indication: HIV INFECTION
     Route: 048
  2. EPZICOM [Concomitant]
     Indication: HIV INFECTION
     Route: 048
     Dates: end: 20090806
  3. REYATAZ [Concomitant]
     Indication: HIV INFECTION
     Route: 048
     Dates: end: 20090806
  4. NORVIR [Concomitant]
     Indication: HIV INFECTION
     Route: 048
     Dates: end: 20090806
  5. TRIZIVIR [Concomitant]
     Indication: HIV INFECTION
     Route: 048
     Dates: start: 20090807
  6. VIRACEPT [Concomitant]
     Indication: HIV INFECTION
     Route: 048
     Dates: start: 20090807

REACTIONS (3)
  - PREGNANCY [None]
  - TRISOMY 18 [None]
  - TRISOMY 21 [None]
